FAERS Safety Report 16626278 (Version 5)
Quarter: 2020Q2

REPORT INFORMATION
  Report Type: Report from Study
  Country: BR (occurrence: BR)
  Receive Date: 20190724
  Receipt Date: 20200406
  Transmission Date: 20200713
  Serious: Yes (Hospitalization)
  Sender: FDA-Public Use
  Company Number: BR-BIOGEN-2019BI00765047

PATIENT
  Sex: Male

DRUGS (1)
  1. AVONEX PEN [Suspect]
     Active Substance: INTERFERON BETA-1A
     Indication: MULTIPLE SCLEROSIS
     Route: 030
     Dates: start: 201807, end: 201809

REACTIONS (6)
  - Flushing [Recovered/Resolved]
  - Multiple sclerosis relapse [Recovered/Resolved]
  - Multiple sclerosis [Recovered/Resolved with Sequelae]
  - Pruritus [Recovered/Resolved]
  - Paraesthesia [Unknown]
  - Drug ineffective [Recovered/Resolved]
